FAERS Safety Report 10834146 (Version 1)
Quarter: 2015Q1

REPORT INFORMATION
  Report Type: Report from Study
  Country: US (occurrence: US)
  Receive Date: 20150219
  Receipt Date: 20150219
  Transmission Date: 20150721
  Serious: Yes (Hospitalization)
  Sender: FDA-Public Use
  Company Number: US-ABBVIE-14P-163-1212626-00

PATIENT
  Age: 25 Year
  Sex: Female

DRUGS (8)
  1. OXYCODONE [Concomitant]
     Active Substance: OXYCODONE
     Indication: PRODUCT USED FOR UNKNOWN INDICATION
  2. HUMIRA [Suspect]
     Active Substance: ADALIMUMAB
     Indication: COLITIS ULCERATIVE
     Dates: start: 20100920, end: 20100920
  3. LEXAPRO [Concomitant]
     Active Substance: ESCITALOPRAM OXALATE
     Indication: PRODUCT USED FOR UNKNOWN INDICATION
  4. HUMIRA [Suspect]
     Active Substance: ADALIMUMAB
     Dates: start: 20140101, end: 20140101
  5. HUMIRA [Suspect]
     Active Substance: ADALIMUMAB
     Dates: start: 20140115, end: 20140115
  6. HUMIRA [Suspect]
     Active Substance: ADALIMUMAB
     Dates: start: 20140212
  7. HUMIRA [Suspect]
     Active Substance: ADALIMUMAB
     Dates: start: 20101018, end: 20101104
  8. HUMIRA [Suspect]
     Active Substance: ADALIMUMAB
     Dates: start: 20101004, end: 20101004

REACTIONS (8)
  - Colitis ulcerative [Unknown]
  - Injection site pain [Not Recovered/Not Resolved]
  - Anxiety [Unknown]
  - Injection site reaction [Unknown]
  - Injection site pruritus [Unknown]
  - Injection site haemorrhage [Not Recovered/Not Resolved]
  - Injection site swelling [Unknown]
  - Injection site bruising [Unknown]

NARRATIVE: CASE EVENT DATE: 20100920
